FAERS Safety Report 16493633 (Version 1)
Quarter: 2019Q2

REPORT INFORMATION
  Report Type: Spontaneous
  Country: ES (occurrence: ES)
  Receive Date: 20190628
  Receipt Date: 20190628
  Transmission Date: 20190711
  Serious: Yes (Hospitalization)
  Sender: FDA-Public Use
  Company Number: ES-ACCORD-135392

PATIENT
  Age: 95 Year
  Sex: Male

DRUGS (3)
  1. FUROSEMIDE. [Interacting]
     Active Substance: FUROSEMIDE
     Indication: CARDIAC FAILURE CONGESTIVE
     Dosage: 40 MG
     Route: 048
     Dates: start: 20140224, end: 20170527
  2. ENALAPRIL AUROVITAS [Interacting]
     Active Substance: ENALAPRIL
     Indication: HYPERTENSION
     Dosage: 1-0-0, STRENGTH : 10 MG
     Route: 048
     Dates: start: 20140224, end: 20170527
  3. SPIRONOLACTONE. [Suspect]
     Active Substance: SPIRONOLACTONE
     Indication: CARDIAC FAILURE CONGESTIVE
     Dosage: 25MG
     Route: 048
     Dates: start: 20140730, end: 20170527

REACTIONS (2)
  - Drug interaction [Unknown]
  - Acute kidney injury [Recovered/Resolved with Sequelae]

NARRATIVE: CASE EVENT DATE: 20170527
